FAERS Safety Report 9547475 (Version 1)
Quarter: 2013Q2

REPORT INFORMATION
  Report Type: Spontaneous
  Country: US (occurrence: None)
  Receive Date: 20130606
  Receipt Date: 20130606
  Transmission Date: 20140414
  Serious: No
  Sender: FDA-Public Use
  Company Number: 2013PROUSA02538

PATIENT
  Age: 79 Year
  Sex: Male
  Weight: 106.6 kg

DRUGS (8)
  1. PROVENGE (SIPULEUCEL-T) SUSPENSION, 250ML [Suspect]
     Indication: PROSTATE CANCER METASTATIC
     Dosage: 250 ML, SINGLE, INTRAVENOUS
     Route: 042
     Dates: start: 20130125, end: 20130125
  2. CASODEX (BICALUTAMIDE) [Concomitant]
  3. ASPIRIN (ACETYLSALICYLIC ACID) [Concomitant]
  4. FEXOFENADINE [Concomitant]
  5. NORVASC (AMLODIPINE BESILATE) [Concomitant]
  6. ZOCOR (SIMVASTATIN) [Concomitant]
  7. SINGULAIR [Concomitant]
  8. ZOLOFT (SERTRALINE HYDROCHLORIDE) [Concomitant]

REACTIONS (2)
  - Infusion site extravasation [None]
  - Infusion site haematoma [None]
